FAERS Safety Report 5524548-1 (Version None)
Quarter: 2007Q4

REPORT INFORMATION
  Report Type: 
  Country: None (occurrence: None)
  Receive Date: 20071123
  Receipt Date: 20071107
  Transmission Date: 20080405
  Serious: Yes (Other)
  Sender: FDA-Public Use
  Company Number: CA-RANBAXY-2007RR-11354

PATIENT

DRUGS (8)
  1. MINOCYCLINE RPG 100MG COMPRIME PELLICULE [Suspect]
     Indication: ACNE
     Dosage: 50 MG, BID
     Dates: start: 20010307, end: 20010901
  2. MINOCYCLINE RPG 100MG COMPRIME PELLICULE [Suspect]
     Dosage: UNK
     Dates: start: 20020302, end: 20020902
  3. TETRACYCLINE CAPSULES BP 250MG [Suspect]
     Indication: ACNE
     Dosage: UNK
     Dates: start: 20021101, end: 20021118
  4. DIDANOSINE [Concomitant]
  5. STAVUDINE [Concomitant]
  6. NEVIRAPINE [Concomitant]
  7. LOPINAVIR AND RITONAVIR [Concomitant]
  8. TENOFOVIR DISOPROXIL FUMARATE [Concomitant]
     Dosage: UNK
     Dates: start: 20020101

REACTIONS (2)
  - DRUG INTERACTION [None]
  - HYPERTRIGLYCERIDAEMIA [None]
